FAERS Safety Report 14375703 (Version 1)
Quarter: 2018Q1

REPORT INFORMATION
  Report Type: Spontaneous
  Country: US (occurrence: US)
  Receive Date: 20180110
  Receipt Date: 20180110
  Transmission Date: 20180509
  Serious: Yes (Other)
  Sender: FDA-Public Use
  Company Number: None

PATIENT
  Age: 33 Year
  Sex: Male
  Weight: 147 kg

DRUGS (1)
  1. CVS MINOXIDILE 5 % SOLUTION [Suspect]
     Active Substance: MINOXIDIL
     Route: 061

REACTIONS (4)
  - Erectile dysfunction [None]
  - Libido decreased [None]
  - Genital hypoaesthesia [None]
  - Sexual dysfunction [None]

NARRATIVE: CASE EVENT DATE: 20180110
